FAERS Safety Report 6457323-4 (Version None)
Quarter: 2009Q4

REPORT INFORMATION
  Report Type: 
  Country: None (occurrence: None)
  Receive Date: 20091125
  Receipt Date: 20091119
  Transmission Date: 20100525
  Serious: Yes (Hospitalization)
  Sender: FDA-Public Use
  Company Number: GXKR2009GB02862

PATIENT
  Age: 43 Year
  Sex: Female
  Weight: 163.5 kg

DRUGS (25)
  1. LISINOPRIL [Suspect]
     Dosage: 20 MG, QD
     Route: 048
     Dates: end: 20081013
  2. ACOMPLIA [Suspect]
     Indication: OBESITY
     Dosage: 20 MG, UNK
     Route: 048
     Dates: start: 20070626, end: 20081013
  3. IRBESARTAN [Suspect]
     Dosage: 150 MG, UNK
     Route: 048
     Dates: end: 20081013
  4. SPIRONOLACTONE [Suspect]
     Dosage: 50 MG, UNK
     Route: 048
     Dates: end: 20081013
  5. ACETYLSALICYLIC ACID [Concomitant]
     Indication: CARDIOVASCULAR EVENT PROPHYLAXIS
     Dosage: 75 MG, QD
     Route: 065
  6. ACETYLSALICYLIC ACID [Concomitant]
     Indication: CARDIAC DISORDER
  7. ATENOLOL [Concomitant]
     Dosage: 50 MG, ONE MONTH
     Route: 048
  8. ATORVASTATIN [Concomitant]
     Dosage: 80 MG, ONE DAY
     Route: 048
  9. BISOPROLOL [Concomitant]
     Route: 065
  10. CODEINE [Concomitant]
     Indication: MUSCLE SPASMS
     Dosage: 120 MG
     Route: 048
  11. DILTIAZEM [Concomitant]
     Route: 065
  12. FUROSEMIDE [Concomitant]
     Dosage: 40 MG, ONE MONTHS
     Route: 048
  13. GLYCERYL TRINITRATE [Concomitant]
     Indication: CARDIAC DISORDER
     Dosage: 400 UG
     Route: 060
  14. ISOSORBIDE MONONITRATE [Concomitant]
     Dosage: 60 MG, UNK
     Route: 048
  15. ISPAGHULA HUSK [Concomitant]
     Dosage: 2 DF, UNK
     Route: 048
  16. LIDOCAINE [Concomitant]
     Route: 061
  17. NITRAZEPAM [Concomitant]
     Dosage: 5 MG
     Route: 048
  18. OMACOR                             /01403701/ [Concomitant]
     Dosage: 1 DF, QD
     Route: 048
  19. LOVAZA [Concomitant]
     Route: 048
  20. OMEPRAZOLE [Concomitant]
     Dosage: 20 MG, ONE DAY
     Route: 048
  21. PARACETAMOL [Concomitant]
     Indication: MUSCLE SPASMS
     Dosage: 4 G
     Route: 048
  22. QUININE SULFATE [Concomitant]
     Dosage: 300 MG
     Route: 048
  23. TRIMETHOPRIM [Concomitant]
     Indication: URINARY TRACT INFECTION
     Dosage: 100 MG, UNK
     Route: 048
  24. VESICARE [Concomitant]
     Indication: BLADDER DISORDER
     Dosage: 5 MG, ONE DAY
     Route: 065
  25. SOLIFENACIN [Concomitant]
     Dosage: UNK
     Route: 048

REACTIONS (18)
  - ANAL HAEMORRHAGE [None]
  - ATRIAL FIBRILLATION [None]
  - BACK PAIN [None]
  - CONSTIPATION [None]
  - DEHYDRATION [None]
  - DYSPEPSIA [None]
  - FEAR OF EATING [None]
  - GASTROOESOPHAGEAL REFLUX DISEASE [None]
  - HYPERTENSION [None]
  - NAUSEA [None]
  - OEDEMA [None]
  - OLIGURIA [None]
  - PYREXIA [None]
  - RECTAL HAEMORRHAGE [None]
  - RENAL FAILURE ACUTE [None]
  - RENAL PAIN [None]
  - VOMITING [None]
  - WEIGHT INCREASED [None]
